FAERS Safety Report 4622074-5 (Version None)
Quarter: 2005Q1

REPORT INFORMATION
  Report Type: 
  Country: None (occurrence: None)
  Receive Date: 20050328
  Receipt Date: 20050318
  Transmission Date: 20050727
  Serious: Yes (Hospitalization, Other)
  Sender: FDA-Public Use
  Company Number: KII-2005-0015558

PATIENT
  Age: 14 Year
  Sex: Male

DRUGS (3)
  1. MORPHINE SULFATE [Suspect]
     Indication: DRUG USE FOR UNKNOWN INDICATION
  2. VARSOL/STODDARD SOLVENT/MINERAL SPIRITS() [Suspect]
     Indication: DRUG USE FOR UNKNOWN INDICATION
     Dosage: INHALATION
     Route: 055
  3. SPOT REMOVER: HYDROCARBON, NON-HALOGENATED() [Suspect]
     Indication: DRUG USE FOR UNKNOWN INDICATION
     Dosage: INHALATION

REACTIONS (4)
  - CONFUSIONAL STATE [None]
  - CYANOSIS [None]
  - MENTAL STATUS CHANGES [None]
  - VOMITING [None]
